FAERS Safety Report 25249287 (Version 2)
Quarter: 2025Q2

REPORT INFORMATION
  Report Type: Spontaneous
  Country: FR (occurrence: FR)
  Receive Date: 20250429
  Receipt Date: 20250620
  Transmission Date: 20250717
  Serious: Yes (Other)
  Sender: AUROBINDO
  Company Number: FR-AFSSAPS-TO2025000630

PATIENT
  Age: 26 Year
  Sex: Male
  Weight: 98 kg

DRUGS (1)
  1. ARIPIPRAZOLE [Suspect]
     Active Substance: ARIPIPRAZOLE
     Indication: Affective disorder
     Dosage: 1 DOSAGE FORM, ONCE A DAY(10MG) (1 TABLET IN THE EVENING)
     Route: 048
     Dates: start: 20220819, end: 20241006

REACTIONS (5)
  - Obesity [Not Recovered/Not Resolved]
  - Economic problem [Not Recovered/Not Resolved]
  - Gambling disorder [Recovered/Resolved]
  - Hypersexuality [Recovered/Resolved]
  - Abnormal weight gain [Recovered/Resolved]

NARRATIVE: CASE EVENT DATE: 20220801
